FAERS Safety Report 9460440 (Version 4)
Quarter: 2013Q4

REPORT INFORMATION
  Report Type: Spontaneous
  Country: US (occurrence: US)
  Receive Date: 20130815
  Receipt Date: 20131003
  Transmission Date: 20140711
  Serious: Yes (Other)
  Sender: FDA-Public Use
  Company Number: US-BAXTER-2013BAX031976

PATIENT
  Age: 32 Year
  Sex: Male

DRUGS (6)
  1. RECOMBINATE [Suspect]
     Indication: HAEMOPHILIA
     Route: 042
     Dates: start: 20130804, end: 20130804
  2. RECOMBINATE [Suspect]
     Indication: GASTROINTESTINAL HAEMORRHAGE
     Route: 042
     Dates: start: 20130806, end: 20130806
  3. RECOMBINATE [Suspect]
     Dosage: 5000-6000 IU
     Route: 042
     Dates: start: 20130812
  4. RECOMBINATE [Suspect]
     Route: 042
  5. KLONOPIN [Concomitant]
     Indication: PRODUCT USED FOR UNKNOWN INDICATION
     Route: 048
  6. EXCEDRIN MIGRAINE [Concomitant]
     Indication: PRODUCT USED FOR UNKNOWN INDICATION
     Route: 048

REACTIONS (10)
  - Hypersensitivity [Recovered/Resolved]
  - Dizziness [Recovered/Resolved]
  - Pruritus [Recovered/Resolved]
  - Abasia [Recovered/Resolved]
  - Depressed level of consciousness [Recovered/Resolved]
  - Headache [Recovering/Resolving]
  - Lethargy [Recovered/Resolved]
  - Dizziness [Recovered/Resolved]
  - Somnolence [Unknown]
  - Feeling abnormal [Unknown]
